FAERS Safety Report 6881772-3 (Version None)
Quarter: 2010Q3

REPORT INFORMATION
  Report Type: 
  Country: None (occurrence: None)
  Receive Date: 20100729
  Receipt Date: 20100722
  Transmission Date: 20110219
  Serious: Yes (Other)
  Sender: FDA-Public Use
  Company Number: GB-WYE-G06378610

PATIENT
  Sex: Female
  Weight: 93 kg

DRUGS (19)
  1. EFFEXOR XR [Suspect]
     Indication: DEPRESSION
     Route: 048
     Dates: start: 19980101
  2. EFFEXOR XR [Suspect]
     Route: 048
  3. DIAZEPAM [Concomitant]
     Indication: ANXIETY
     Dosage: 5MG 3 TIMES A DAY AS REQUIRED
     Route: 048
     Dates: start: 20010919
  4. TEMAZEPAM [Concomitant]
     Indication: INSOMNIA
     Dosage: 10MG NOCTE AS REQUIRED
     Route: 048
     Dates: start: 20010910
  5. HYDROXYCARBAMIDE [Concomitant]
     Dosage: UNKNOWN
  6. OMEPRAZOLE [Concomitant]
     Dosage: UNKNOWN
  7. ALBUTEROL [Concomitant]
     Indication: ASTHMA
     Dosage: 1 PUFF AS REQUIRED
     Route: 055
     Dates: start: 20041013
  8. LEVOCETIRIZINE DIHYDROCHLORIDE [Concomitant]
     Indication: PRURITUS
     Route: 048
     Dates: start: 20080521
  9. CYANOCOBALAMIN [Concomitant]
     Dosage: UNKNOWN
  10. CARBOCISTEINE [Concomitant]
     Indication: ASTHMA
     Dosage: 375MG 2 DOSES THREE TIMES A DAY
     Route: 048
     Dates: start: 20070223
  11. CARBOCISTEINE [Concomitant]
     Indication: BRONCHIECTASIS
  12. MONTELUKAST [Concomitant]
     Indication: ASTHMA
     Dosage: 10 MG NOCTE
     Route: 048
     Dates: start: 20070420
  13. TIOTROPIUM BROMIDE [Concomitant]
     Indication: ASTHMA
     Route: 055
     Dates: start: 20070620
  14. CICLESONIDE [Concomitant]
     Indication: ASTHMA
     Route: 055
     Dates: start: 20080312
  15. SALMETEROL [Concomitant]
     Indication: ASTHMA
     Route: 055
     Dates: start: 20080312
  16. METOCLOPRAMIDE [Concomitant]
     Indication: IRRITABLE BOWEL SYNDROME
     Dosage: 10 MG AS REQUIRED
     Route: 048
     Dates: start: 20060621
  17. LEVOTHYROXINE [Concomitant]
     Indication: HYPOTHYROIDISM
     Route: 048
     Dates: start: 20100119
  18. ACETAMINOPHEN AND CODEINE PHOSPHATE [Concomitant]
     Indication: BACK PAIN
     Dosage: DOSE UNKNOWN, THREE TIMES A DAY AS REQUIRED
     Route: 048
     Dates: start: 20100701
  19. LOPERAMIDE [Concomitant]
     Indication: IRRITABLE BOWEL SYNDROME
     Dosage: 2MG AS REQUIRED
     Dates: start: 20030522

REACTIONS (1)
  - HEAD TITUBATION [None]
